FAERS Safety Report 8149510-4 (Version None)
Quarter: 2012Q1

REPORT INFORMATION
  Report Type: 
  Country: None (occurrence: None)
  Receive Date: 20120218
  Receipt Date: 20111025
  Transmission Date: 20120608
  Serious: No
  Sender: FDA-Public Use
  Company Number: US-ALLERGAN-1114064US

PATIENT
  Sex: Male

DRUGS (2)
  1. BOTULINUM TOXIN TYPE A [Suspect]
     Dosage: UNK UNITS, UNK
     Route: 030
     Dates: start: 20111001, end: 20111001
  2. BOTULINUM TOXIN TYPE A [Suspect]
     Indication: BLEPHAROSPASM
     Dosage: 5 UNITS, SINGLE
     Route: 030

REACTIONS (1)
  - DRUG INEFFECTIVE [None]
